FAERS Safety Report 4911097-4 (Version None)
Quarter: 2006Q1

REPORT INFORMATION
  Report Type: 
  Country: None (occurrence: None)
  Receive Date: 20060214
  Receipt Date: 20060202
  Transmission Date: 20060701
  Serious: Yes (Death)
  Sender: FDA-Public Use
  Company Number: US-SANOFI-SYNTHELABO-A03200600668

PATIENT
  Sex: Male

DRUGS (3)
  1. PLAVIX [Suspect]
     Indication: MYOCARDIAL INFARCTION
     Route: 048
     Dates: start: 20040401
  2. AVALIDE [Suspect]
     Indication: HYPERTENSION
     Dosage: 150/12.5 MG QD
     Route: 048
     Dates: start: 20040401
  3. ASPIRIN [Concomitant]
     Route: 048
     Dates: start: 19880101

REACTIONS (2)
  - ACUTE MYOCARDIAL INFARCTION [None]
  - DRUG INEFFECTIVE [None]
